FAERS Safety Report 6582975-8 (Version None)
Quarter: 2010Q1

REPORT INFORMATION
  Report Type: 
  Country: None (occurrence: None)
  Receive Date: 20100212
  Receipt Date: 20100212
  Transmission Date: 20100710
  Serious: Yes (Hospitalization)
  Sender: FDA-Public Use
  Company Number: None

PATIENT
  Age: 43 Year
  Sex: Female
  Weight: 85 kg

DRUGS (1)
  1. DILAUDID [Suspect]
     Indication: PAIN
     Dosage: 1 MG OTHER IV
     Route: 042
     Dates: start: 20091126

REACTIONS (5)
  - CHEST PAIN [None]
  - RESPIRATORY DEPRESSION [None]
  - TACHYPNOEA [None]
  - TREMOR [None]
  - UNRESPONSIVE TO STIMULI [None]
